FAERS Safety Report 8078860-5 (Version None)
Quarter: 2012Q1

REPORT INFORMATION
  Report Type: 
  Country: None (occurrence: None)
  Receive Date: 20120127
  Receipt Date: 20110223
  Transmission Date: 20120608
  Serious: No
  Sender: FDA-Public Use
  Company Number: US-ABBOTT-11P-163-0707677-00

PATIENT

DRUGS (6)
  1. HUMIRA [Suspect]
     Route: 058
     Dates: start: 20110211, end: 20110211
  2. XIFAXAN [Concomitant]
     Indication: PRODUCT USED FOR UNKNOWN INDICATION
  3. HUMIRA [Suspect]
  4. METHYPREDNISONE [Concomitant]
     Indication: PRODUCT USED FOR UNKNOWN INDICATION
  5. FOLIC ACID [Concomitant]
     Indication: PRODUCT USED FOR UNKNOWN INDICATION
  6. HUMIRA [Suspect]
     Indication: CROHN'S DISEASE
     Dosage: STARTER KIT; 4 IN 1 DAY
     Route: 058
     Dates: start: 20110128, end: 20110128

REACTIONS (1)
  - MUSCLE SPASMS [None]
